FAERS Safety Report 14220991 (Version 1)
Quarter: 2017Q4

REPORT INFORMATION
  Report Type: Report from Study
  Country: US (occurrence: US)
  Receive Date: 20171124
  Receipt Date: 20171124
  Transmission Date: 20180321
  Serious: Yes (Other)
  Sender: FDA-Public Use
  Company Number: US-UCBSA-2017047612

PATIENT
  Age: 30 Year

DRUGS (2)
  1. BRIVARACETAM [Suspect]
     Active Substance: BRIVARACETAM
     Dosage: UNK, (TAPERRED DOSE)
  2. BRIVARACETAM [Suspect]
     Active Substance: BRIVARACETAM
     Indication: EPILEPSY
     Dosage: UNK UNK, 2X/DAY (BID)

REACTIONS (2)
  - Generalised tonic-clonic seizure [Unknown]
  - Intentional product misuse [Unknown]
